FAERS Safety Report 6027410-3 (Version None)
Quarter: 2008Q4

REPORT INFORMATION
  Report Type: 
  Country: None (occurrence: None)
  Receive Date: 20081231
  Receipt Date: 20081231
  Transmission Date: 20090506
  Serious: No
  Sender: FDA-Public Use
  Company Number: None

PATIENT
  Age: 40 Year
  Sex: Female
  Weight: 61.2356 kg

DRUGS (2)
  1. BUDEPRION XL 150MG TEVA [Suspect]
     Indication: ANXIETY
     Dosage: 150MG 1 PER DAY PO
     Route: 048
     Dates: start: 20081202, end: 20081216
  2. BUDEPRION XL 150MG TEVA [Suspect]
     Indication: DEPRESSION
     Dosage: 150MG 1 PER DAY PO
     Route: 048
     Dates: start: 20081202, end: 20081216

REACTIONS (2)
  - DRUG INEFFECTIVE [None]
  - THERAPEUTIC RESPONSE UNEXPECTED WITH DRUG SUBSTITUTION [None]
